FAERS Safety Report 7575058-1 (Version None)
Quarter: 2011Q2

REPORT INFORMATION
  Report Type: 
  Country: None (occurrence: None)
  Receive Date: 20110627
  Receipt Date: 20110618
  Transmission Date: 20111010
  Serious: Yes (Hospitalization)
  Sender: FDA-Public Use
  Company Number: FR-B.I. PHARMACEUTICALS,INC./RIDGEFIELD-2011-FF-00594FF

PATIENT

DRUGS (2)
  1. PRADAXA [Suspect]
     Indication: PROPHYLAXIS
  2. PRADAXA [Suspect]
     Indication: CARDIAC VALVE PROSTHESIS USER
     Dosage: 220 MG
     Route: 048
     Dates: end: 20110617

REACTIONS (1)
  - FEMORAL NECK FRACTURE [None]
